FAERS Safety Report 8411346-4 (Version None)
Quarter: 2012Q2

REPORT INFORMATION
  Report Type: 
  Country: None (occurrence: None)
  Receive Date: 20120605
  Receipt Date: 20120312
  Transmission Date: 20120825
  Serious: Yes (Hospitalization)
  Sender: FDA-Public Use
  Company Number: TR-JNJFOC-20120313010

PATIENT
  Age: 41 Year
  Sex: Female

DRUGS (20)
  1. DIAZEPAM [Suspect]
     Route: 065
  2. CITALOPRAM HYDROBROMIDE [Suspect]
     Indication: PRODUCT USED FOR UNKNOWN INDICATION
     Route: 065
     Dates: start: 19960101
  3. RISPERIDONE [Suspect]
     Route: 048
     Dates: end: 20120206
  4. RISPERIDONE [Suspect]
     Route: 048
  5. VALPROATE SODIUM [Suspect]
     Indication: MAJOR DEPRESSION
     Route: 065
     Dates: end: 20120206
  6. DIAZEPAM [Suspect]
     Route: 065
     Dates: start: 19960101
  7. LORAZEPAM [Suspect]
     Route: 065
     Dates: start: 20120217
  8. RISPERIDONE [Concomitant]
     Route: 030
     Dates: start: 20120209
  9. RISPERIDONE [Suspect]
     Route: 048
     Dates: end: 20120206
  10. RISPERIDONE [Suspect]
     Route: 048
     Dates: start: 19960101
  11. DIAZEPAM [Suspect]
     Indication: MAJOR DEPRESSION
     Route: 065
  12. RISPERIDONE [Suspect]
     Route: 048
     Dates: start: 20120206
  13. DIAZEPAM [Suspect]
     Route: 065
  14. RISPERIDONE [Suspect]
     Indication: SCHIZOPHRENIA
     Route: 048
     Dates: start: 20120206
  15. DIAZEPAM [Suspect]
     Route: 065
     Dates: start: 19960101
  16. LORAZEPAM [Suspect]
     Indication: PRODUCT USED FOR UNKNOWN INDICATION
     Route: 065
     Dates: end: 20120217
  17. RISPERIDONE [Suspect]
     Route: 048
  18. CLOMIPRAMINE HCL [Suspect]
     Indication: PRODUCT USED FOR UNKNOWN INDICATION
     Route: 065
     Dates: start: 19960101
  19. RISPERIDONE [Suspect]
     Indication: MAJOR DEPRESSION
     Route: 048
     Dates: start: 19960101
  20. DIAZEPAM [Suspect]
     Indication: PRODUCT USED FOR UNKNOWN INDICATION
     Route: 065

REACTIONS (3)
  - AGITATION [None]
  - SCHIZOPHRENIA [None]
  - DRUG THERAPEUTIC INCOMPATIBILITY [None]
